FAERS Safety Report 25895839 (Version 2)
Quarter: 2025Q4

REPORT INFORMATION
  Report Type: Spontaneous
  Country: US (occurrence: None)
  Receive Date: 20251008
  Receipt Date: 20251121
  Transmission Date: 20260118
  Serious: Yes (Hospitalization, Other)
  Sender: UCB
  Company Number: US-UCBSA-2025063255

PATIENT
  Age: 10 Year
  Weight: 35.1 kg

DRUGS (24)
  1. KEPPRA [Suspect]
     Active Substance: LEVETIRACETAM
     Indication: Epilepsy
     Dosage: 1000 MILLIGRAM, 2X/DAY (BID)
  2. KEPPRA [Suspect]
     Active Substance: LEVETIRACETAM
     Indication: Seizure
     Dosage: 1000 MILLIGRAM, 3X/DAY (TID)
  3. VIMPAT [Suspect]
     Active Substance: LACOSAMIDE
     Indication: Status epilepticus
     Dosage: UNK
  4. DIAMOX SEQUELS [Concomitant]
     Active Substance: ACETAZOLAMIDE
     Indication: Status epilepticus
     Dosage: UNK
  5. FOSPHENYTOIN [Concomitant]
     Active Substance: FOSPHENYTOIN
     Indication: Status epilepticus
     Dosage: UNK
  6. Apliom [Concomitant]
     Indication: Status epilepticus
     Dosage: UNK
  7. PREDNISONE [Concomitant]
     Active Substance: PREDNISONE
     Indication: Status epilepticus
     Dosage: UNK
  8. Trileplal [Concomitant]
     Indication: Status epilepticus
     Dosage: UNK
  9. FELBAMATE [Concomitant]
     Active Substance: FELBAMATE
     Indication: Status epilepticus
     Dosage: UNK
  10. XCOPRI [Concomitant]
     Active Substance: CENOBAMATE
     Indication: Product used for unknown indication
     Dosage: UNK
  11. ONFI [Concomitant]
     Active Substance: CLOBAZAM
     Indication: Product used for unknown indication
     Dosage: 7.5 MILLIGRAM
  12. ONFI [Concomitant]
     Active Substance: CLOBAZAM
     Dosage: 5 MILLIGRAM
  13. FELBATOL [Concomitant]
     Active Substance: FELBAMATE
     Indication: Product used for unknown indication
     Dosage: 1200 MILLIGRAM
  14. FELBATOL [Concomitant]
     Active Substance: FELBAMATE
     Dosage: 1000 MILLIGRAM
  15. FELBATOL [Concomitant]
     Active Substance: FELBAMATE
     Dosage: 800 MILLIGRAM
  16. EPIDIOLEX [Concomitant]
     Active Substance: CANNABIDIOL
     Indication: Product used for unknown indication
     Dosage: UNK
  17. EPIDIOLEX [Concomitant]
     Active Substance: CANNABIDIOL
     Dosage: 360 MILLIGRAM, 2X/DAY (BID)
  18. FYCOMPA [Concomitant]
     Active Substance: PERAMPANEL
     Indication: Product used for unknown indication
     Dosage: 6 MILLIGRAM, HS
  19. CLOBAZAM [Concomitant]
     Active Substance: CLOBAZAM
     Indication: Product used for unknown indication
     Dosage: 5 MILLIGRAM
  20. CLOBAZAM [Concomitant]
     Active Substance: CLOBAZAM
     Dosage: 10 MILLIGRAM, 2X/DAY (BID)
  21. ZONISAMIDE [Concomitant]
     Active Substance: ZONISAMIDE
     Indication: Product used for unknown indication
     Dosage: 300 MILLIGRAM, HS
  22. LAMOTRIGINE [Concomitant]
     Active Substance: LAMOTRIGINE
     Indication: Product used for unknown indication
     Dosage: 400 MILLIGRAM, DAILY
  23. LAMOTRIGINE E. [Concomitant]
     Indication: Product used for unknown indication
  24. LAMOTRIGINE E. [Concomitant]
     Dosage: 250 MILLIGRAM, 2X/DAY (BID)

REACTIONS (26)
  - Status epilepticus [Unknown]
  - Nausea [Not Recovered/Not Resolved]
  - Vomiting [Not Recovered/Not Resolved]
  - Depressed level of consciousness [Unknown]
  - Polymicrogyria [Unknown]
  - Epilepsy [Recovering/Resolving]
  - Seizure [Recovering/Resolving]
  - Dystonia [Unknown]
  - Reticulocyte count decreased [Unknown]
  - Malaise [Unknown]
  - Hypotonia [Unknown]
  - Fall [Unknown]
  - Ataxia [Unknown]
  - Blepharospasm [Unknown]
  - Excessive eye blinking [Unknown]
  - Fatigue [Unknown]
  - Posture abnormal [Unknown]
  - Nasopharyngitis [Unknown]
  - Somnolence [Unknown]
  - Slow speech [Unknown]
  - Hypophagia [Unknown]
  - Gait disturbance [Unknown]
  - Hypokinesia [Unknown]
  - Head titubation [Unknown]
  - Vagal nerve stimulator implantation [Unknown]
  - Off label use [Unknown]
